FAERS Safety Report 15535955 (Version 1)
Quarter: 2018Q4

REPORT INFORMATION
  Report Type: Spontaneous
  Country: CO (occurrence: CO)
  Receive Date: 20181015
  Receipt Date: 20181015
  Transmission Date: 20190205
  Serious: Yes (Hospitalization, Disabling)
  Sender: FDA-Public Use
  Company Number: None

PATIENT
  Age: 50 Year
  Sex: Female
  Weight: 63 kg

DRUGS (3)
  1. MOXIFLOXACIN 400MG GENFAR [Suspect]
     Active Substance: MOXIFLOXACIN
     Indication: ENDODONTIC PROCEDURE
     Dosage: ?          QUANTITY:1 DF DOSAGE FORM;?
     Route: 048
  2. MOXIFLOXACIN 400MG GENFAR [Suspect]
     Active Substance: MOXIFLOXACIN
     Indication: ANTIBIOTIC PROPHYLAXIS
     Dosage: ?          QUANTITY:1 DF DOSAGE FORM;?
     Route: 048
  3. ATORVASTATIN [Concomitant]
     Active Substance: ATORVASTATIN

REACTIONS (20)
  - Fatigue [None]
  - Arthralgia [None]
  - Chest discomfort [None]
  - Anxiety [None]
  - Asphyxia [None]
  - Discomfort [None]
  - Blood cholesterol increased [None]
  - Tension [None]
  - Depressed mood [None]
  - Blood triglycerides increased [None]
  - Vision blurred [None]
  - Paraesthesia [None]
  - Headache [None]
  - Eye swelling [None]
  - Loss of personal independence in daily activities [None]
  - Dizziness [None]
  - Chest pain [None]
  - Emotional distress [None]
  - Dyspnoea [None]
  - Tachycardia [None]

NARRATIVE: CASE EVENT DATE: 20181013
